FAERS Safety Report 18641877 (Version 2)
Quarter: 2021Q1

REPORT INFORMATION
  Report Type: Spontaneous
  Country: US (occurrence: US)
  Receive Date: 20201221
  Receipt Date: 20210112
  Transmission Date: 20210419
  Serious: Yes (Hospitalization)
  Sender: FDA-Public Use
  Company Number: US-JNJFOC-20201232237

PATIENT
  Sex: Female

DRUGS (9)
  1. ASA [Suspect]
     Active Substance: ASPIRIN
     Dosage: ESCALATING DOSES
     Route: 048
  2. ASA [Suspect]
     Active Substance: ASPIRIN
     Indication: PRODUCT USED FOR UNKNOWN INDICATION
     Dosage: STARTING DOSE
     Route: 048
  3. IBUPROFEN. [Suspect]
     Active Substance: IBUPROFEN
     Indication: PRODUCT USED FOR UNKNOWN INDICATION
     Route: 048
  4. ASA [Suspect]
     Active Substance: ASPIRIN
     Dosage: ESCALATING DOSES
     Route: 048
  5. ASA [Suspect]
     Active Substance: ASPIRIN
     Route: 048
  6. ASA [Suspect]
     Active Substance: ASPIRIN
     Route: 048
  7. DICLOFENAC SODIUM. [Suspect]
     Active Substance: DICLOFENAC SODIUM
     Indication: PRODUCT USED FOR UNKNOWN INDICATION
     Route: 048
  8. ASA [Suspect]
     Active Substance: ASPIRIN
     Route: 048
  9. DUPILUMAB [Concomitant]
     Active Substance: DUPILUMAB
     Indication: PRODUCT USED FOR UNKNOWN INDICATION
     Dosage: 600 MG SQ
     Route: 065

REACTIONS (1)
  - Asthma [Recovering/Resolving]
